FAERS Safety Report 8577655-3 (Version None)
Quarter: 2012Q3

REPORT INFORMATION
  Report Type: 
  Country: None (occurrence: None)
  Receive Date: 20120807
  Receipt Date: 20120730
  Transmission Date: 20120928
  Serious: Yes (Other)
  Sender: FDA-Public Use
  Company Number: US-FRI-1000037457

PATIENT
  Age: 79 Year
  Sex: Female

DRUGS (3)
  1. DILTIAZEM [Suspect]
     Dosage: 360 MG
     Route: 048
  2. DIGOXIN [Suspect]
     Dosage: 0.125 MG
     Route: 048
  3. CLONIDINE [Suspect]
     Dosage: 0.9 MG
     Route: 048

REACTIONS (5)
  - LEFT ATRIAL DILATATION [None]
  - ACCIDENTAL OVERDOSE [None]
  - NODAL RHYTHM [None]
  - ATRIOVENTRICULAR BLOCK SECOND DEGREE [None]
  - SINUS BRADYCARDIA [None]
